FAERS Safety Report 26204878 (Version 1)
Quarter: 2025Q4

REPORT INFORMATION
  Report Type: Spontaneous
  Country: KR (occurrence: KR)
  Receive Date: 20251227
  Receipt Date: 20251227
  Transmission Date: 20260118
  Serious: Yes (Death, Other)
  Sender: AMGEN
  Company Number: KR-AMGEN-KORSP2025253234

PATIENT

DRUGS (6)
  1. BLINATUMOMAB [Suspect]
     Active Substance: BLINATUMOMAB
     Indication: B precursor type acute leukaemia
     Dosage: UNK
     Route: 065
  2. BLINATUMOMAB [Suspect]
     Active Substance: BLINATUMOMAB
     Indication: Philadelphia chromosome positive
  3. BLINATUMOMAB [Suspect]
     Active Substance: BLINATUMOMAB
     Indication: Philadelphia chromosome negative
  4. INOTUZUMAB OZOGAMICIN [Suspect]
     Active Substance: INOTUZUMAB OZOGAMICIN
     Indication: B precursor type acute leukaemia
     Dosage: 0.8 MILLIGRAM/ BSA (WEEK 1)
     Route: 065
  5. INOTUZUMAB OZOGAMICIN [Suspect]
     Active Substance: INOTUZUMAB OZOGAMICIN
     Indication: Philadelphia chromosome negative
     Dosage: 0.5 MILLIGRAM/ BSA (WEEK 2-3)
     Route: 065
  6. INOTUZUMAB OZOGAMICIN [Suspect]
     Active Substance: INOTUZUMAB OZOGAMICIN
     Indication: Philadelphia chromosome positive
     Dosage: 0.5 MILLIGRAM/ BSA (WEEK 1-3)
     Route: 065

REACTIONS (24)
  - Death [Fatal]
  - Hepatic failure [Fatal]
  - Sepsis [Fatal]
  - Multiple organ dysfunction syndrome [Fatal]
  - Acute lymphocytic leukaemia recurrent [Unknown]
  - Venoocclusive liver disease [Unknown]
  - Thrombocytopenia [Unknown]
  - Neutropenia [Unknown]
  - Hepatotoxicity [Unknown]
  - Gastrointestinal toxicity [Unknown]
  - Arrhythmia [Unknown]
  - Cardiomyopathy [Unknown]
  - Cardiac failure [Unknown]
  - Acute kidney injury [Unknown]
  - Neurotoxicity [Unknown]
  - Infection [Unknown]
  - Lymphopenia [Unknown]
  - Anaemia [Unknown]
  - Coronary artery disease [Unknown]
  - Oedema [Unknown]
  - Eye pain [Unknown]
  - Arthralgia [Unknown]
  - Rash [Unknown]
  - Treatment failure [Unknown]
